FAERS Safety Report 25359330 (Version 1)
Quarter: 2025Q2

REPORT INFORMATION
  Report Type: Spontaneous
  Country: JP (occurrence: JP)
  Receive Date: 20250526
  Receipt Date: 20250526
  Transmission Date: 20250717
  Serious: Yes (Hospitalization)
  Sender: FERRING
  Company Number: JP-ferring-EVA202500706FERRINGPH

PATIENT

DRUGS (2)
  1. DESMOPRESSIN ACETATE [Suspect]
     Active Substance: DESMOPRESSIN ACETATE
     Indication: Diabetes insipidus
     Dosage: 120 UG, DAILY
     Route: 048
  2. CORTRIL [Concomitant]
     Active Substance: HYDROCORTISONE
     Indication: Hypopituitarism
     Route: 065

REACTIONS (3)
  - Physical deconditioning [Unknown]
  - Adrenal disorder [Unknown]
  - Nasopharyngitis [Recovering/Resolving]
